FAERS Safety Report 23985732 (Version 1)
Quarter: 2024Q2

REPORT INFORMATION
  Report Type: Spontaneous
  Country: CN (occurrence: CN)
  Receive Date: 20240618
  Receipt Date: 20240618
  Transmission Date: 20240715
  Serious: Yes (Hospitalization)
  Sender: FDA-Public Use
  Company Number: CN-PFIZER INC-PV202400078112

PATIENT
  Age: 3 Year
  Sex: Female
  Weight: 14 kg

DRUGS (4)
  1. CYTARABINE [Suspect]
     Active Substance: CYTARABINE
     Indication: Chemotherapy
     Dosage: 24 MG, 2X/DAY
     Route: 042
     Dates: start: 20240531, end: 20240606
  2. CYTARABINE [Suspect]
     Active Substance: CYTARABINE
     Dosage: 27MG Q12H (50MG/M2) D1-D7
     Dates: start: 20240531
  3. CYCLOPHOSPHAMIDE [Suspect]
     Active Substance: CYCLOPHOSPHAMIDE
     Indication: Chemotherapy
     Dosage: 0.55G (1.0G/M2) D1
     Route: 041
     Dates: start: 20240531, end: 20240531
  4. MERCAPTOPURINE [Concomitant]
     Active Substance: MERCAPTOPURINE
     Indication: Chemotherapy
     Dosage: (40MG/M2) DL-D7
     Dates: start: 20240531

REACTIONS (1)
  - Hypoproteinaemia [Recovering/Resolving]

NARRATIVE: CASE EVENT DATE: 20240611
